FAERS Safety Report 13148069 (Version 3)
Quarter: 2017Q1

REPORT INFORMATION
  Report Type: Spontaneous
  Country: JP (occurrence: JP)
  Receive Date: 20170125
  Receipt Date: 20170209
  Transmission Date: 20170428
  Serious: Yes (Death, Hospitalization, Other)
  Sender: FDA-Public Use
  Company Number: PHJP2017JP002450

PATIENT
  Age: 78 Year
  Sex: Male
  Weight: 50 kg

DRUGS (20)
  1. ZOMETA [Suspect]
     Active Substance: ZOLEDRONIC ACID
     Indication: BONE LESION
     Route: 041
  2. MELPHALAN [Concomitant]
     Active Substance: MELPHALAN
     Dosage: 7 MG/M2, UNK
     Route: 065
     Dates: start: 20141016
  3. PREDONINE [Concomitant]
     Active Substance: PREDNISOLONE
     Dosage: 60 MG/M2, UNK
     Route: 065
     Dates: start: 20141120
  4. BORTEZOMIB [Concomitant]
     Active Substance: BORTEZOMIB
     Dosage: 1.3 MG/M2, UNK
     Route: 065
     Dates: start: 20141016
  5. MELPHALAN [Concomitant]
     Active Substance: MELPHALAN
     Dosage: 5 MG/M2, UNK
     Route: 065
     Dates: start: 20150430
  6. PREDONINE [Concomitant]
     Active Substance: PREDNISOLONE
     Dosage: 60 MG/M2, UNK
     Route: 065
     Dates: start: 20141016
  7. LENALIDOMIDE [Concomitant]
     Active Substance: LENALIDOMIDE
     Dosage: 25 MG, QD
     Route: 065
     Dates: start: 20150319
  8. PREDONINE [Concomitant]
     Active Substance: PREDNISOLONE
     Dosage: 15MG/M2 (25MG/DAY) ON DAY 1-4
     Route: 065
     Dates: start: 20150430
  9. BORTEZOMIB [Concomitant]
     Active Substance: BORTEZOMIB
     Indication: PLASMA CELL MYELOMA
     Dosage: 1.3 MG/M2, UNK
     Route: 065
     Dates: start: 20140918
  10. DEXAMETHASONE. [Concomitant]
     Active Substance: DEXAMETHASONE
     Indication: PLASMA CELL MYELOMA
     Dosage: 20 MG, UNK
     Route: 065
     Dates: start: 20150115
  11. MELPHALAN [Concomitant]
     Active Substance: MELPHALAN
     Indication: PLASMA CELL MYELOMA
     Dosage: 7MG/M2 (12MG/DAY) D1?4
     Route: 065
     Dates: start: 20140918
  12. BORTEZOMIB [Concomitant]
     Active Substance: BORTEZOMIB
     Dosage: 1.0MG/M2 (1.5MG/DAY) ON DAY 1, 8, 15, 22/5W
     Route: 065
     Dates: start: 20150430
  13. BORTEZOMIB [Concomitant]
     Active Substance: BORTEZOMIB
     Dosage: 1.3 MG/M2, UNK
     Route: 065
     Dates: start: 20141120
  14. OPIOIDS [Concomitant]
     Active Substance: UNSPECIFIED INGREDIENT
     Indication: PRODUCT USED FOR UNKNOWN INDICATION
     Route: 065
  15. DEXAMETHASONE. [Concomitant]
     Active Substance: DEXAMETHASONE
     Dosage: 20 MG, UNK
     Route: 065
     Dates: start: 20150219
  16. DEXAMETHASONE. [Concomitant]
     Active Substance: DEXAMETHASONE
     Dosage: 20 MG, D1, 8, 15, 22
     Route: 065
     Dates: start: 20150319
  17. MELPHALAN [Concomitant]
     Active Substance: MELPHALAN
     Dosage: 7 MG/M2, UNK
     Route: 065
     Dates: start: 20141120
  18. PREDONINE [Concomitant]
     Active Substance: PREDNISOLONE
     Indication: PLASMA CELL MYELOMA
     Dosage: 60MG/M2 (100MG/DAY) D1?4
     Route: 065
     Dates: start: 20140918
  19. LENALIDOMIDE [Concomitant]
     Active Substance: LENALIDOMIDE
     Indication: PLASMA CELL MYELOMA
     Dosage: 15 MG, QD
     Route: 065
     Dates: start: 20150115
  20. LENALIDOMIDE [Concomitant]
     Active Substance: LENALIDOMIDE
     Dosage: 20 MG, QD
     Route: 065
     Dates: start: 20150219

REACTIONS (17)
  - Pyrexia [Unknown]
  - Plasma cell myeloma [Unknown]
  - Soft tissue neoplasm [Unknown]
  - Tumour associated fever [Unknown]
  - General physical health deterioration [Unknown]
  - Therapy non-responder [Unknown]
  - Sepsis [Unknown]
  - Concomitant disease aggravated [Unknown]
  - Rib fracture [Unknown]
  - Pneumonia [Unknown]
  - Leukaemia [Unknown]
  - Death [Fatal]
  - Blood immunoglobulin G increased [Unknown]
  - Psychological trauma [Unknown]
  - Activities of daily living impaired [Unknown]
  - Adenocarcinoma gastric [Unknown]
  - Bone erosion [Unknown]

NARRATIVE: CASE EVENT DATE: 20140904
